FAERS Safety Report 21083721 (Version 1)
Quarter: 2022Q3

REPORT INFORMATION
  Report Type: Spontaneous
  Country: KR (occurrence: KR)
  Receive Date: 20220714
  Receipt Date: 20220714
  Transmission Date: 20221027
  Serious: Yes (Other)
  Sender: FDA-Public Use
  Company Number: KR-GW PHARMA-2022-KR-011525

PATIENT
  Age: 52 Year
  Sex: Female

DRUGS (1)
  1. EPIDIOLEX [Suspect]
     Active Substance: CANNABIDIOL
     Indication: Lennox-Gastaut syndrome
     Dosage: 1CC-} 2CC-} 3CC BID
     Route: 048
     Dates: start: 202201

REACTIONS (4)
  - Somnolence [Not Recovered/Not Resolved]
  - Sedation [Not Recovered/Not Resolved]
  - Helplessness [Unknown]
  - Boredom [Unknown]

NARRATIVE: CASE EVENT DATE: 20220301
